FAERS Safety Report 21255092 (Version 1)
Quarter: 2022Q3

REPORT INFORMATION
  Report Type: Spontaneous
  Country: CN (occurrence: CN)
  Receive Date: 20220825
  Receipt Date: 20220825
  Transmission Date: 20221027
  Serious: Yes (Hospitalization, Other)
  Sender: FDA-Public Use
  Company Number: None

PATIENT
  Age: 63 Year
  Sex: Male
  Weight: 48 kg

DRUGS (6)
  1. CYCLOPHOSPHAMIDE [Suspect]
     Active Substance: CYCLOPHOSPHAMIDE
     Indication: Acute leukaemia
     Dosage: 900 MG, QD, (DILUTED WITH NS 500 ML)
     Route: 041
     Dates: start: 20220603, end: 20220603
  2. SODIUM CHLORIDE [Suspect]
     Active Substance: SODIUM CHLORIDE
     Indication: Medication dilution
     Dosage: 100 ML, QD, (DILUTED IN DAUNORUBICIN HYDROCHLORIDE)
     Route: 041
     Dates: start: 20220603, end: 20220603
  3. SODIUM CHLORIDE [Suspect]
     Active Substance: SODIUM CHLORIDE
     Dosage: 100 ML, QD, (DILUTED IN VINCRISTINE SULFATE)
     Route: 041
     Dates: start: 20220603, end: 20220603
  4. SODIUM CHLORIDE [Suspect]
     Active Substance: SODIUM CHLORIDE
     Dosage: 500 ML, QD, (DILUTED IN CYCLOPHOSPHAMIDE)
     Route: 041
     Dates: start: 20220603, end: 20220603
  5. DAUNORUBICIN HYDROCHLORIDE [Suspect]
     Active Substance: DAUNORUBICIN HYDROCHLORIDE
     Indication: Acute leukaemia
     Dosage: 60 MG, QD, (DILUTED WITH NS 100 ML)
     Route: 041
     Dates: start: 20220603, end: 20220603
  6. VINCRISTINE SULFATE [Suspect]
     Active Substance: VINCRISTINE SULFATE
     Indication: Acute leukaemia
     Dosage: 2 MG, QD, (DILUTED WITH NS 100 ML)
     Route: 041
     Dates: start: 20220603, end: 20220603

REACTIONS (1)
  - Myelosuppression [Recovered/Resolved]

NARRATIVE: CASE EVENT DATE: 20220608
